FAERS Safety Report 23568949 (Version 1)
Quarter: 2024Q1

REPORT INFORMATION
  Report Type: Spontaneous
  Country: US (occurrence: US)
  Receive Date: 20240227
  Receipt Date: 20240227
  Transmission Date: 20240410
  Serious: Yes (Other)
  Sender: FDA-Public Use
  Company Number: US-BRISTOL-MYERS SQUIBB COMPANY-2024-030619

PATIENT
  Age: 58 Year
  Sex: Male

DRUGS (1)
  1. REVLIMID [Suspect]
     Active Substance: LENALIDOMIDE
     Indication: Amyloidosis
     Dosage: TAKING MEDICATION EVERY DAY FOR 21 DAYS AND DOSE NOW MON WED FRI FOR 3 WEEKS THEN 1 WEEK OFF
     Route: 048

REACTIONS (3)
  - Fatigue [Recovered/Resolved]
  - Full blood count decreased [Recovered/Resolved]
  - Off label use [Unknown]
